FAERS Safety Report 15302650 (Version 1)
Quarter: 2018Q3

REPORT INFORMATION
  Report Type: Spontaneous
  Country: US (occurrence: US)
  Receive Date: 20180821
  Receipt Date: 20180821
  Transmission Date: 20181010
  Serious: No
  Sender: FDA-Public Use
  Company Number: US-BAYER-2018-156342

PATIENT
  Age: 69 Year
  Sex: Female
  Weight: 61 kg

DRUGS (4)
  1. FISH OIL [Concomitant]
     Active Substance: FISH OIL
  2. VITAMIN D3 [Concomitant]
     Active Substance: CHOLECALCIFEROL
  3. ALEVE [Suspect]
     Active Substance: NAPROXEN SODIUM
     Indication: PAIN
     Dosage: 2 DF, UNK(1 CAPLET IN THE MORNING AND 1 AT NIGHT   )
     Route: 048
     Dates: start: 2018
  4. GLUCOSAMINE [Concomitant]
     Active Substance: GLUCOSAMINE

REACTIONS (2)
  - Drug effective for unapproved indication [Unknown]
  - Drug ineffective [Unknown]

NARRATIVE: CASE EVENT DATE: 2018
